FAERS Safety Report 8604142-6 (Version None)
Quarter: 2012Q3

REPORT INFORMATION
  Report Type: 
  Country: None (occurrence: None)
  Receive Date: 20120806
  Receipt Date: 20120719
  Transmission Date: 20120928
  Serious: Yes (Death, Other)
  Sender: FDA-Public Use
  Company Number: US-2012-10276

PATIENT
  Age: 48 Year
  Sex: Female

DRUGS (9)
  1. BUSULFEX [Suspect]
     Indication: STEM CELL TRANSPLANT
     Dosage: 12.8 MG/KG
     Dates: start: 20090301
  2. TACROLIMUS [Concomitant]
  3. DASATINIB (DASATINIB) [Concomitant]
  4. CYCLOPHOSPHAMIDE [Concomitant]
  5. NIOTINIB HYDROCHLORIDE (NIOTINIB HYDROCHLORIDE) [Concomitant]
  6. MYCOPHENOLATE MOFETIL [Concomitant]
  7. FLUDARA [Concomitant]
  8. CYTARABINE [Concomitant]
  9. IMATINIB MESYLATE [Concomitant]

REACTIONS (7)
  - ACUTE GRAFT VERSUS HOST DISEASE [None]
  - PANCYTOPENIA [None]
  - LIVER DISORDER [None]
  - RECURRENT CANCER [None]
  - BRAIN ABSCESS [None]
  - FATIGUE [None]
  - CYSTITIS HAEMORRHAGIC [None]
